FAERS Safety Report 9252815 (Version 1)
Quarter: 2013Q1

REPORT INFORMATION
  Report Type: Spontaneous
  Country: US (occurrence: None)
  Receive Date: 20130305
  Receipt Date: 20130305
  Transmission Date: 20140127
  Serious: Yes (Hospitalization, Other)
  Sender: FDA-Public Use
  Company Number: 163-21880-12042914

PATIENT
  Age: 61 Year
  Sex: Female
  Weight: 103.15 kg

DRUGS (15)
  1. REVLIMID [Suspect]
     Indication: MYELODYSPLASTIC SYNDROME
     Dosage: 25 MG, DAILY X 21 DAYS/OFF 7 DAYS
     Route: 048
     Dates: start: 20111209
  2. HYDROCHLOROTHIAZIDE (HYDROCHLOROTHIAZIDE) (TABLETS) [Concomitant]
  3. EXJADE (DEFERASIROX) (TABLETS) [Concomitant]
  4. GLUCOSAMINE CHONDROITIN (GLUCOSAMINE W/ CHONDROITIN [Concomitant]
  5. FISH OIL (FISH OIL) (CAPSULES) [Concomitant]
  6. MULTIPLE VITAMIN ESSENTIAL (MULTIVITAMINS) (TABLETS) [Concomitant]
  7. MIRALAX (MACROGOL) (POWDER) [Concomitant]
  8. STOOL SOFTENER (DOCUSATE SODIUM) (CAPSULES) [Concomitant]
  9. VIVELLE DOT (ESTRADIOL) (POULTICE OR PATCH) [Concomitant]
  10. NEXIUM (ESOMEPRAZOLE) (CAPSULES) [Concomitant]
  11. SIMVASTATIN [Concomitant]
  12. TOPROL XL (METOPROLOL SUCCINATE) (TABLETS) [Concomitant]
  13. METHADONE (METHADONE) (TABLETS) [Concomitant]
  14. CYMBALTA (DULOXETINE HYDROCHLORIDE) (CAPSULES) [Concomitant]
  15. SYNTHROID (LEVOTHYROXINE SODIUM) (TABLETS) [Concomitant]

REACTIONS (4)
  - Thrombocytopenia [None]
  - Haemoglobin decreased [None]
  - Serum ferritin increased [None]
  - Nasopharyngitis [None]
